FAERS Safety Report 6547261-0 (Version None)
Quarter: 2010Q1

REPORT INFORMATION
  Report Type: 
  Country: None (occurrence: None)
  Receive Date: 20100122
  Receipt Date: 20090726
  Transmission Date: 20100710
  Serious: No
  Sender: FDA-Public Use
  Company Number: US-BAUSCH-2009BL003763

PATIENT
  Age: 24 Year
  Sex: Female

DRUGS (2)
  1. ZYLET [Suspect]
     Indication: EYE INFECTION BACTERIAL
     Route: 047
     Dates: start: 20090724, end: 20090725
  2. RITALIN [Concomitant]
     Indication: ATTENTION DEFICIT/HYPERACTIVITY DISORDER
     Route: 048

REACTIONS (2)
  - DECREASED APPETITE [None]
  - HEADACHE [None]
